FAERS Safety Report 14280047 (Version 2)
Quarter: 2017Q4

REPORT INFORMATION
  Report Type: Spontaneous
  Country: CH (occurrence: CH)
  Receive Date: 20171213
  Receipt Date: 20171214
  Transmission Date: 20180321
  Serious: Yes (Hospitalization, Other)
  Sender: FDA-Public Use
  Company Number: CH-ASPEN-GLO2017CH007663

PATIENT

DRUGS (44)
  1. METHOTREXATE (METHOTREXATE SODIUM) [Suspect]
     Active Substance: METHOTREXATE SODIUM
     Dosage: 12 MG, PRN
     Route: 037
     Dates: start: 20170703, end: 20170703
  2. METHOTREXATE (METHOTREXATE SODIUM) [Suspect]
     Active Substance: METHOTREXATE SODIUM
     Dosage: 12 MG, PRN
     Route: 037
     Dates: start: 20170802, end: 20170802
  3. METHOTREXATE (METHOTREXATE SODIUM) [Suspect]
     Active Substance: METHOTREXATE SODIUM
     Dosage: 5100 MG, PRN
     Route: 041
     Dates: start: 20170717, end: 20170718
  4. METHOTREXATE (METHOTREXATE SODIUM) [Suspect]
     Active Substance: METHOTREXATE SODIUM
     Dosage: 12 MG, QD
     Route: 037
     Dates: start: 20171012, end: 20171020
  5. ENDOXAN [Suspect]
     Active Substance: CYCLOPHOSPHAMIDE
     Dosage: 1050 MG, PRN
     Route: 041
     Dates: start: 20170408, end: 20170408
  6. FORTECORTIN [Suspect]
     Active Substance: DEXAMETHASONE
     Indication: PRODUCT USED FOR UNKNOWN INDICATION
     Dosage: 11 MG, QD
     Route: 048
     Dates: start: 20170828, end: 20170917
  7. VINCRISTIN [Suspect]
     Active Substance: VINCRISTINE
     Dosage: 1.6 MG, PRN
     Route: 042
     Dates: start: 20170925, end: 20170925
  8. NOPIL [Concomitant]
     Active Substance: SULFAMETHOXAZOLE\TRIMETHOPRIM
     Indication: PRODUCT USED FOR UNKNOWN INDICATION
     Dosage: 160 MG
     Route: 048
     Dates: start: 20170915
  9. PARACETAMOL [Concomitant]
     Active Substance: ACETAMINOPHEN
     Indication: PRODUCT USED FOR UNKNOWN INDICATION
     Dosage: 600 MG
     Route: 041
     Dates: start: 20170926, end: 20171008
  10. METHOTREXATE (METHOTREXATE SODIUM) [Suspect]
     Active Substance: METHOTREXATE SODIUM
     Dosage: 12 MG, PRN
     Route: 037
     Dates: start: 20170306, end: 20170306
  11. VINCRISTIN [Suspect]
     Active Substance: VINCRISTINE
     Dosage: 1.6 MG, PRN
     Route: 042
     Dates: start: 20170908, end: 20170908
  12. VINCRISTIN [Suspect]
     Active Substance: VINCRISTINE
     Dosage: 1.6 MG, PRN
     Route: 042
     Dates: start: 20170311, end: 20170311
  13. ADRIBLASTIN [Suspect]
     Active Substance: DOXORUBICIN HYDROCHLORIDE
     Indication: PRODUCT USED FOR UNKNOWN INDICATION
     Dosage: 32 MG, PRN
     Route: 042
     Dates: start: 20170908, end: 20170908
  14. TAVEGYL [Concomitant]
     Active Substance: CLEMASTINE FUMARATE
     Indication: PRODUCT USED FOR UNKNOWN INDICATION
     Dosage: 1 MG, QD
     Route: 042
     Dates: start: 20171002, end: 20171003
  15. METHOTREXATE (METHOTREXATE SODIUM) [Suspect]
     Active Substance: METHOTREXATE SODIUM
     Dosage: 5350 MG, PRN
     Route: 041
     Dates: start: 20170619, end: 20170620
  16. ONDANSETRON [Concomitant]
     Active Substance: ONDANSETRON
     Indication: PRODUCT USED FOR UNKNOWN INDICATION
     Dosage: 4 MG, BID
     Route: 042
     Dates: start: 20171010, end: 20171011
  17. NOVALGIN [Concomitant]
     Active Substance: METAMIZOLE SODIUM
     Indication: PRODUCT USED FOR UNKNOWN INDICATION
     Dosage: 300 MG, BID
     Route: 048
     Dates: start: 20171010, end: 20171010
  18. LANVIS [Suspect]
     Active Substance: THIOGUANINE ANHYDROUS
     Indication: PRODUCT USED FOR UNKNOWN INDICATION
     Dosage: 60 MG, QD
     Route: 048
     Dates: start: 20171009, end: 20171023
  19. METHOTREXATE (METHOTREXATE SODIUM) [Suspect]
     Active Substance: METHOTREXATE SODIUM
     Dosage: 12 MG, PRN
     Route: 037
     Dates: start: 20170717, end: 20170717
  20. FORTECORTIN [Suspect]
     Active Substance: DEXAMETHASONE
     Dosage: 6 MG, QD
     Route: 048
     Dates: start: 20170918, end: 20170923
  21. VINCRISTIN [Suspect]
     Active Substance: VINCRISTINE
     Dosage: 1.6 MG, PRN
     Route: 042
     Dates: start: 20170918, end: 20170918
  22. ENDOXAN [Suspect]
     Active Substance: CYCLOPHOSPHAMIDE
     Indication: PRODUCT USED FOR UNKNOWN INDICATION
     Dosage: 1070 MG, QD
     Route: 041
     Dates: start: 20171010, end: 20171010
  23. FUROSEMID [Concomitant]
     Active Substance: FUROSEMIDE
     Indication: PRODUCT USED FOR UNKNOWN INDICATION
     Dosage: 15 MG, PRN
     Route: 042
     Dates: start: 20171011, end: 20171011
  24. PEG/L-ASPARAGINASE [Suspect]
     Active Substance: PEGASPARGASE
     Indication: PRODUCT USED FOR UNKNOWN INDICATION
     Dosage: 2600 IU, QD
     Route: 041
     Dates: start: 20170901, end: 20170901
  25. METHOTREXATE (METHOTREXATE SODIUM) [Suspect]
     Active Substance: METHOTREXATE SODIUM
     Indication: PRODUCT USED FOR UNKNOWN INDICATION
     Dosage: 12 MG, PRN
     Route: 037
     Dates: start: 20170619, end: 20170619
  26. AMPHOTERICIN B. [Suspect]
     Active Substance: AMPHOTERICIN B
     Indication: PRODUCT USED FOR UNKNOWN INDICATION
     Dosage: 90 MG, QD
     Route: 041
     Dates: start: 20171002, end: 20171006
  27. ADRIBLASTIN [Suspect]
     Active Substance: DOXORUBICIN HYDROCHLORIDE
     Dosage: 32 MG, PRN
     Route: 042
     Dates: start: 20170918, end: 20170918
  28. ADRIBLASTIN [Suspect]
     Active Substance: DOXORUBICIN HYDROCHLORIDE
     Dosage: 32 MG, PRN
     Route: 042
     Dates: start: 20170925, end: 20170925
  29. NALOXON [Concomitant]
     Active Substance: NALOXONE HYDROCHLORIDE
     Indication: PRODUCT USED FOR UNKNOWN INDICATION
     Dosage: UNK
     Route: 042
     Dates: start: 20170930, end: 20171007
  30. TRAMADOL. [Concomitant]
     Active Substance: TRAMADOL
     Indication: PRODUCT USED FOR UNKNOWN INDICATION
     Dosage: UNK
     Route: 048
     Dates: start: 20170930, end: 20170930
  31. CYTARABINE. [Suspect]
     Active Substance: CYTARABINE
     Indication: PRODUCT USED FOR UNKNOWN INDICATION
     Dosage: 80 MG
     Route: 042
     Dates: start: 20171012, end: 20171015
  32. MESNA. [Suspect]
     Active Substance: MESNA
     Indication: PRODUCT USED FOR UNKNOWN INDICATION
     Dosage: 430 MG, QD
     Route: 041
     Dates: start: 20171010, end: 20171010
  33. MESNA. [Suspect]
     Active Substance: MESNA
     Dosage: UNK
     Route: 065
     Dates: start: 20170523, end: 20170523
  34. FORTAM [Concomitant]
     Active Substance: CEFTAZIDIME
     Indication: PRODUCT USED FOR UNKNOWN INDICATION
     Dosage: 150 MG/KG, TID
     Dates: start: 20170927, end: 20171001
  35. MEROPENEM. [Concomitant]
     Active Substance: MEROPENEM
     Indication: PRODUCT USED FOR UNKNOWN INDICATION
     Dosage: 1200 MG, TID
     Route: 042
     Dates: start: 20171001, end: 20171006
  36. FLUCONAZOL [Concomitant]
     Active Substance: FLUCONAZOLE
     Indication: PRODUCT USED FOR UNKNOWN INDICATION
     Dosage: 1 DF
     Route: 048
     Dates: start: 20170930, end: 20171001
  37. PEG/L-ASPARAGINASE [Suspect]
     Active Substance: PEGASPARGASE
     Dosage: 2700 IU, PRN
     Route: 041
     Dates: start: 20170315, end: 20170315
  38. METHOTREXATE (METHOTREXATE SODIUM) [Suspect]
     Active Substance: METHOTREXATE SODIUM
     Dosage: 5300 MG, PRN
     Route: 041
     Dates: start: 20170703, end: 20170704
  39. METHOTREXATE (METHOTREXATE SODIUM) [Suspect]
     Active Substance: METHOTREXATE SODIUM
     Dosage: 5350 MG, PRN
     Route: 041
     Dates: start: 20170802, end: 20170803
  40. CYTARABINE. [Suspect]
     Active Substance: CYTARABINE
     Dosage: 80 MG
     Route: 042
     Dates: start: 20171019, end: 20171022
  41. ENDOXAN [Suspect]
     Active Substance: CYCLOPHOSPHAMIDE
     Dosage: 1050 MG, PRN
     Route: 041
     Dates: start: 20170523, end: 20170523
  42. VINCRISTIN [Suspect]
     Active Substance: VINCRISTINE
     Indication: PRODUCT USED FOR UNKNOWN INDICATION
     Dosage: 1.6 MG, PRN
     Route: 042
     Dates: start: 20170901, end: 20170901
  43. ADRIBLASTIN [Suspect]
     Active Substance: DOXORUBICIN HYDROCHLORIDE
     Dosage: 32 MG, PRN
     Route: 042
     Dates: start: 20170901, end: 20170901
  44. MORPHIN [Concomitant]
     Active Substance: MORPHINE
     Indication: PRODUCT USED FOR UNKNOWN INDICATION
     Dosage: UNK
     Route: 042
     Dates: start: 20170930, end: 20171007

REACTIONS (2)
  - Drug interaction [Recovered/Resolved]
  - Posterior reversible encephalopathy syndrome [Recovered/Resolved]

NARRATIVE: CASE EVENT DATE: 20171012
